FAERS Safety Report 16466735 (Version 1)
Quarter: 2019Q2

REPORT INFORMATION
  Report Type: Report from Study
  Country: US (occurrence: US)
  Receive Date: 20190623
  Receipt Date: 20190623
  Transmission Date: 20190711
  Serious: Yes (Hospitalization, Other)
  Sender: FDA-Public Use
  Company Number: US-JNJFOC-20190303436

PATIENT
  Age: 61 Year
  Sex: Male

DRUGS (17)
  1. POLYHEXAMETHYLENE BIGUANIDE HYDROCHLORIDE [Concomitant]
     Active Substance: POLIHEXANIDE HYDROCHLORIDE
  2. PEPCID [Concomitant]
     Active Substance: FAMOTIDINE
  3. FEBUXOSTAT. [Concomitant]
     Active Substance: FEBUXOSTAT
  4. VALACYCLOVIR [Concomitant]
     Active Substance: VALACYCLOVIR HYDROCHLORIDE
  5. IMBRUVICA [Suspect]
     Active Substance: IBRUTINIB
     Indication: CHRONIC LYMPHOCYTIC LEUKAEMIA
     Route: 048
     Dates: start: 20180427
  6. VENCLEXTA [Suspect]
     Active Substance: VENETOCLAX
     Indication: CHRONIC LYMPHOCYTIC LEUKAEMIA
     Route: 065
     Dates: start: 20190118
  7. VITAMIN D [Concomitant]
     Active Substance: VITAMIN D NOS
  8. FLOMAX [Concomitant]
     Active Substance: TAMSULOSIN HYDROCHLORIDE
  9. FAMOTIDINE UNSPECIFIED [Concomitant]
  10. IMBRUVICA [Suspect]
     Active Substance: IBRUTINIB
     Indication: CHRONIC LYMPHOCYTIC LEUKAEMIA
     Route: 048
     Dates: start: 20140924, end: 20180426
  11. VALTREX [Concomitant]
     Active Substance: VALACYCLOVIR HYDROCHLORIDE
  12. BIOTIN [Concomitant]
     Active Substance: BIOTIN
     Dosage: 5000 U/G, UNK
  13. CALCIUM MAGNESIUM ZINC             /01320801/ [Concomitant]
     Dosage: ONE DAY
  14. DRAMAMINE [Concomitant]
     Active Substance: DIMENHYDRINATE
  15. CALCIUM [Concomitant]
     Active Substance: CALCIUM
  16. PROSCAR [Concomitant]
     Active Substance: FINASTERIDE
  17. FINASTERIDE. [Concomitant]
     Active Substance: FINASTERIDE

REACTIONS (8)
  - Neutrophil count decreased [Recovered/Resolved]
  - Haemoglobin decreased [Recovered/Resolved]
  - Dyspepsia [Unknown]
  - Platelet count decreased [Not Recovered/Not Resolved]
  - Diarrhoea [Unknown]
  - Blood count abnormal [Unknown]
  - Nausea [Unknown]
  - Febrile neutropenia [Unknown]

NARRATIVE: CASE EVENT DATE: 20190430
